FAERS Safety Report 5956870-9 (Version None)
Quarter: 2008Q4

REPORT INFORMATION
  Report Type: 
  Country: None (occurrence: None)
  Receive Date: 20081106
  Receipt Date: 20070910
  Transmission Date: 20090506
  Serious: Yes (Death)
  Sender: FDA-Public Use
  Company Number: US200709002276

PATIENT
  Age: 19 Year
  Sex: Male

DRUGS (3)
  1. PROZAC [Suspect]
     Indication: DEPRESSION
     Dosage: 12.5 MG, DAILY (1/D), ORAL
     Route: 048
     Dates: start: 20070701
  2. ZOLOFT [Concomitant]
  3. PAXIL [Concomitant]

REACTIONS (2)
  - COMPLETED SUICIDE [None]
  - FEAR [None]
